FAERS Safety Report 7820383-X (Version None)
Quarter: 2011Q4

REPORT INFORMATION
  Report Type: 
  Country: None (occurrence: None)
  Receive Date: 20111018
  Receipt Date: 20111010
  Transmission Date: 20120403
  Serious: Yes (Other)
  Sender: FDA-Public Use
  Company Number: US-BAYER-2011-098565

PATIENT
  Age: 22 Year
  Sex: Female

DRUGS (2)
  1. YAZ [Suspect]
     Route: 048
  2. YASMIN [Suspect]
     Dosage: UNK
     Route: 048

REACTIONS (2)
  - CHOLECYSTECTOMY [None]
  - INJURY [None]
